FAERS Safety Report 19741710 (Version 1)
Quarter: 2021Q3

REPORT INFORMATION
  Report Type: Spontaneous
  Country: US (occurrence: US)
  Receive Date: 20210824
  Receipt Date: 20210824
  Transmission Date: 20211014
  Serious: Yes (Other)
  Sender: FDA-Public Use
  Company Number: US-PFIZER INC-202101027006

PATIENT
  Age: 30 Year
  Sex: Female
  Weight: 69.9 kg

DRUGS (5)
  1. PROPOFOL. [Concomitant]
     Active Substance: PROPOFOL
     Indication: INDUCTION AND MAINTENANCE OF ANAESTHESIA
     Dosage: 200 MG (3MG/KG)
  2. PROPOFOL. [Concomitant]
     Active Substance: PROPOFOL
     Dosage: 100 MG
     Route: 042
  3. SUCCINYLCHOLINE CHLORIDE. [Suspect]
     Active Substance: SUCCINYLCHOLINE CHLORIDE
     Indication: LARYNGOSPASM
     Dosage: 40 MG (0.5 MG/KG)
     Route: 042
  4. PROPOFOL. [Concomitant]
     Active Substance: PROPOFOL
     Dosage: UNK (100?150  MCG/KG/MIN)
  5. SUGAMMADEX [Concomitant]
     Active Substance: SUGAMMADEX
     Dosage: 200 MG

REACTIONS (1)
  - Pseudocholinesterase deficiency [Unknown]
